FAERS Safety Report 12600907 (Version 3)
Quarter: 2016Q3

REPORT INFORMATION
  Report Type: Report from Study
  Country: US (occurrence: US)
  Receive Date: 20160728
  Receipt Date: 20160901
  Transmission Date: 20161109
  Serious: Yes (Other)
  Sender: FDA-Public Use
  Company Number: US-ROCHE-1798277

PATIENT

DRUGS (3)
  1. PACLITAXEL. [Suspect]
     Active Substance: PACLITAXEL
     Indication: NON-SMALL CELL LUNG CANCER
     Dosage: ON DAYS 1, 8 AND 15
     Route: 065
  2. PEMETREXED [Suspect]
     Active Substance: PEMETREXED
     Indication: NON-SMALL CELL LUNG CANCER
     Dosage: ON DAYS 1 AND 15
     Route: 065
  3. BEVACIZUMAB [Suspect]
     Active Substance: BEVACIZUMAB
     Indication: NON-SMALL CELL LUNG CANCER
     Dosage: ON DAYS 1 AND 15
     Route: 065

REACTIONS (26)
  - Neutropenia [Unknown]
  - Febrile neutropenia [Unknown]
  - Pain [Unknown]
  - Mucosal inflammation [Unknown]
  - Dyspnoea [Unknown]
  - Nausea [Unknown]
  - Pleural effusion [Unknown]
  - Lacrimation increased [Unknown]
  - Hypertension [Unknown]
  - Cough [Unknown]
  - Wound [Unknown]
  - Leukopenia [Unknown]
  - Dysphonia [Unknown]
  - Myalgia [Unknown]
  - Oedema [Unknown]
  - Drug hypersensitivity [Unknown]
  - Oedema peripheral [Unknown]
  - Liver function test increased [Unknown]
  - Anaemia [Unknown]
  - Aspartate aminotransferase increased [Unknown]
  - Alanine aminotransferase increased [Unknown]
  - Small intestinal perforation [Unknown]
  - Pneumonitis [Recovered/Resolved]
  - Fatigue [Unknown]
  - Hyperglycaemia [Unknown]
  - Decreased appetite [Unknown]
